FAERS Safety Report 8011082 (Version 4)
Quarter: 2014Q1

REPORT INFORMATION
  Report Type: Spontaneous
  Country: US (occurrence: US)
  Receive Date: 20110627
  Receipt Date: 20140102
  Transmission Date: 20141002
  Serious: Yes (Hospitalization)
  Sender: FDA-Public Use
  Company Number: US-BAYER-2011-053036

PATIENT
  Age: 27 Year
  Sex: Female
  Weight: 69 kg

DRUGS (6)
  1. OCELLA [Suspect]
     Indication: ACNE
     Dosage: UNK
     Route: 048
     Dates: start: 2009
  2. YASMIN [Suspect]
     Route: 048
  3. AVIANE [Concomitant]
     Dosage: UNK
     Dates: start: 2009, end: 2010
  4. ALLEGRA [Concomitant]
     Indication: MULTIPLE ALLERGIES
     Dosage: UNK
     Dates: start: 2008
  5. CELEXA [Concomitant]
     Indication: DEPRESSION
     Dosage: UNK
     Dates: start: 2000, end: 2010
  6. VICODIN [Concomitant]
     Indication: PAIN

REACTIONS (6)
  - Cholecystitis chronic [None]
  - Gallbladder injury [None]
  - Pain [None]
  - Anxiety [None]
  - Anhedonia [None]
  - Fear [None]
